FAERS Safety Report 10574994 (Version 2)
Quarter: 2014Q4

REPORT INFORMATION
  Report Type: Spontaneous
  Country: DE (occurrence: DE)
  Receive Date: 20141111
  Receipt Date: 20141204
  Transmission Date: 20150529
  Serious: Yes (Hospitalization)
  Sender: FDA-Public Use
  Company Number: DE-ROCHE-1488485

PATIENT
  Age: 64 Year
  Sex: Female

DRUGS (7)
  1. ASPIRIN. [Concomitant]
     Active Substance: ASPIRIN
     Route: 065
  2. SPIRIVA [Concomitant]
     Active Substance: TIOTROPIUM BROMIDE MONOHYDRATE
  3. CANDESARTAN [Concomitant]
     Active Substance: CANDESARTAN
     Route: 065
  4. ALLOPURINOL. [Concomitant]
     Active Substance: ALLOPURINOL
     Route: 065
  5. LUCENTIS [Suspect]
     Active Substance: RANIBIZUMAB
     Indication: PRODUCT USED FOR UNKNOWN INDICATION
     Route: 050
     Dates: start: 20141013
  6. SIMVASTATIN. [Concomitant]
     Active Substance: SIMVASTATIN
     Route: 065
  7. SYMBICORT [Concomitant]
     Active Substance: BUDESONIDE\FORMOTEROL FUMARATE DIHYDRATE
     Dosage: 160/4.5 MG
     Route: 065

REACTIONS (19)
  - Thalamic infarction [Unknown]
  - Psychomotor retardation [Unknown]
  - Personality change [Unknown]
  - Extensor plantar response [Unknown]
  - Blood pressure systolic increased [Unknown]
  - Pleural effusion [Unknown]
  - Cerebrovascular accident [Unknown]
  - Atrial septal defect [Unknown]
  - Blood glucose increased [Unknown]
  - C-reactive protein increased [Unknown]
  - Hypertension [Unknown]
  - Hyperlipidaemia [Unknown]
  - Hemiparesis [Unknown]
  - Asthma [Unknown]
  - Anxiety [Unknown]
  - Muscular weakness [Unknown]
  - Pulmonary hypertension [Unknown]
  - Carotid arteriosclerosis [Unknown]
  - Hyperuricaemia [Unknown]

NARRATIVE: CASE EVENT DATE: 20141027
